FAERS Safety Report 5467699-2 (Version None)
Quarter: 2007Q3

REPORT INFORMATION
  Report Type: 
  Country: None (occurrence: None)
  Receive Date: 20070925
  Receipt Date: 20070917
  Transmission Date: 20080115
  Serious: Yes (Hospitalization, Other)
  Sender: FDA-Public Use
  Company Number: US-ELI_LILLY_AND_COMPANY-US200708006096

PATIENT
  Age: 57 Year
  Sex: Male
  Weight: 83.446 kg

DRUGS (7)
  1. BYETTA [Suspect]
     Indication: TYPE 2 DIABETES MELLITUS
     Dosage: 5 UG, 2/D
     Route: 058
     Dates: start: 20050101, end: 20050101
  2. BYETTA [Suspect]
     Dosage: 10 UG, 2/D
     Route: 058
     Dates: start: 20050101, end: 20070817
  3. BYETTA [Suspect]
     Dosage: 10 UG, 2/D
     Route: 058
     Dates: start: 20070823
  4. GLUCOPHAGE [Concomitant]
     Indication: DIABETES MELLITUS
     Dosage: 1000 MG, 2/D
     Route: 048
  5. GLUCOTROL [Concomitant]
     Indication: DIABETES MELLITUS
     Dosage: 2.5 MG, DAILY (1/D)
     Route: 048
  6. LASIX [Concomitant]
     Indication: FLUID RETENTION
     Dosage: 20 MG, DAILY (1/D)
     Route: 048
  7. ALTACE [Concomitant]
     Indication: BLOOD PRESSURE INCREASED
     Dosage: 10 MG, DAILY (1/D)
     Route: 048

REACTIONS (14)
  - ANOREXIA [None]
  - ARTHRALGIA [None]
  - ATRIAL FIBRILLATION [None]
  - CARDIAC FLUTTER [None]
  - FEELING ABNORMAL [None]
  - FLUID RETENTION [None]
  - HEART RATE DECREASED [None]
  - HEART RATE INCREASED [None]
  - INSOMNIA [None]
  - MUSCLE SPASMS [None]
  - PAIN [None]
  - RENAL DISORDER [None]
  - VOMITING [None]
  - WEIGHT FLUCTUATION [None]
